FAERS Safety Report 19050909 (Version 1)
Quarter: 2021Q1

REPORT INFORMATION
  Report Type: Spontaneous
  Country: CN (occurrence: CN)
  Receive Date: 20210323
  Receipt Date: 20210323
  Transmission Date: 20210420
  Serious: Yes (Hospitalization, Other)
  Sender: FDA-Public Use
  Company Number: CN-BAXTER-2021BAX005576

PATIENT
  Age: 4 Year
  Sex: Male
  Weight: 17.5 kg

DRUGS (16)
  1. 0.9% SODIUM CHLORIDE INJECTION [Suspect]
     Active Substance: SODIUM CHLORIDE
     Dosage: 0.9% NS 20 ML + HYCAMTIN 0.5 MG, D1?D5
     Route: 041
     Dates: start: 20210303, end: 20210307
  2. 0.9% SODIUM CHLORIDE INJECTION [Suspect]
     Active Substance: SODIUM CHLORIDE
     Dosage: 0.9% NS 25 ML + ONDANSETRON HYDROCHLORIDE 3.4 MG, D1?D5, THIRTY MINUTES BEFORE DAILY CHEMOTHERAPY
     Route: 042
     Dates: start: 20210303, end: 20210307
  3. ENDOXAN [Suspect]
     Active Substance: CYCLOPHOSPHAMIDE
     Dosage: ENDOXAN 170 MG + 0.9% NS 41 ML, D1?D5
     Route: 041
     Dates: start: 20210303, end: 20210307
  4. 0.9% SODIUM CHLORIDE INJECTION [Suspect]
     Active Substance: SODIUM CHLORIDE
     Dosage: 0.9% NS + ONDANSETRON HYDROCHLORIDE (DOSE RE?INTRODUCED)
     Route: 042
     Dates: start: 202103
  5. ENDOXAN [Suspect]
     Active Substance: CYCLOPHOSPHAMIDE
     Dosage: ENDOXAN + 0.9% NS (DOSE RE?INTRODUCED)
     Route: 041
     Dates: start: 202103
  6. 0.9% SODIUM CHLORIDE INJECTION [Suspect]
     Active Substance: SODIUM CHLORIDE
     Dosage: 0.9% NS + ENDOXAN (DOSE RE?INTRODUCED)
     Route: 041
     Dates: start: 202103
  7. HYCAMTIN [Suspect]
     Active Substance: TOPOTECAN HYDROCHLORIDE
     Indication: NEUROBLASTOMA RECURRENT
     Dosage: TOPOTECAN HYDROCHLORIDE [PRIOR DRUG]
     Route: 065
  8. ONDANSETRON HYDROCHLORIDE. [Suspect]
     Active Substance: ONDANSETRON HYDROCHLORIDE
     Dosage: ONDANSETRON HYDROCHLORIDE + 0.9% NS (DOSE RE?INTRODUCED)
     Route: 042
     Dates: start: 202103
  9. ENDOXAN [Suspect]
     Active Substance: CYCLOPHOSPHAMIDE
     Indication: NEUROBLASTOMA RECURRENT
     Dosage: CYCLOPHOSPHAMIDE [PRIOR DRUG]
     Route: 065
  10. 0.9% SODIUM CHLORIDE INJECTION [Suspect]
     Active Substance: SODIUM CHLORIDE
     Dosage: 0.9% NS + HYCAMTIN (DOSE RE?INTRODUCED)
     Route: 041
     Dates: start: 202103
  11. MESNA. [Suspect]
     Active Substance: MESNA
     Dosage: DOSE RE?INTRODUCED
     Route: 042
     Dates: start: 202103
  12. HYCAMTIN [Suspect]
     Active Substance: TOPOTECAN HYDROCHLORIDE
     Dosage: HYCAMTIN + 0.9% NS (DOSE RE?INTRODUCED)
     Route: 041
     Dates: start: 202103
  13. 0.9% SODIUM CHLORIDE INJECTION [Suspect]
     Active Substance: SODIUM CHLORIDE
     Indication: MEDICATION DILUTION
     Dosage: 0.9% NS 41 ML + ENDOXAN 170 MG, D1?D5
     Route: 041
     Dates: start: 20210303, end: 20210307
  14. HYCAMTIN [Suspect]
     Active Substance: TOPOTECAN HYDROCHLORIDE
     Dosage: HYCAMTIN 0.5 MG + 0.9% NS 20 ML, D1?D5
     Route: 041
     Dates: start: 20210303, end: 20210307
  15. ONDANSETRON HYDROCHLORIDE. [Suspect]
     Active Substance: ONDANSETRON HYDROCHLORIDE
     Indication: PROPHYLAXIS OF NAUSEA AND VOMITING
     Dosage: ONDANSETRON HYDROCHLORIDE 3.4 MG + 0.9% NS 25 ML, D1?D5, THIRTY MINUTES BEFORE DAILY CHEMOTHERAPY
     Route: 042
     Dates: start: 20210303, end: 20210307
  16. MESNA. [Suspect]
     Active Substance: MESNA
     Indication: PROPHYLAXIS
     Dosage: D1?D5, BEFORE AND AFTER ENDOXAN USE
     Route: 042
     Dates: start: 20210303, end: 20210307

REACTIONS (2)
  - Pancytopenia [Recovering/Resolving]
  - Pancytopenia [Recovered/Resolved]

NARRATIVE: CASE EVENT DATE: 20210314
